FAERS Safety Report 8134424-6 (Version None)
Quarter: 2012Q1

REPORT INFORMATION
  Report Type: 
  Country: None (occurrence: None)
  Receive Date: 20120209
  Receipt Date: 20120130
  Transmission Date: 20120608
  Serious: Yes (Other)
  Sender: FDA-Public Use
  Company Number: 2011MA003477

PATIENT
  Sex: Male
  Weight: 63.9572 kg

DRUGS (76)
  1. METHYLDOPA [Concomitant]
  2. VANCENASE [Concomitant]
  3. METRONIDAZOLE [Concomitant]
  4. LOTENSIN [Concomitant]
  5. ACYCLOVIR [Concomitant]
  6. RAPAMUNE [Concomitant]
  7. PROCRIT [Concomitant]
  8. PERCOCET [Concomitant]
  9. TOPROL-XL [Concomitant]
  10. PHOSLO [Concomitant]
  11. MORPHINE [Concomitant]
  12. NEXIUM [Concomitant]
  13. PROTONIX [Concomitant]
  14. SORBITOL 50PC INJ [Concomitant]
  15. LASIX [Concomitant]
  16. NEURONTIN [Concomitant]
  17. NYSTATIN [Concomitant]
  18. IRON [Concomitant]
  19. OYST-CAL [Concomitant]
  20. PREVACID [Concomitant]
  21. GANCICLOVIR [Concomitant]
  22. LAMICTAL [Concomitant]
  23. DAPSONE [Concomitant]
  24. TRIAMCINALONE [Concomitant]
  25. MINOXIDIL [Concomitant]
  26. CYTOVENE [Concomitant]
  27. NEORAL [Concomitant]
  28. MAGNESIUM SULFATE [Concomitant]
  29. PREDNISONE [Concomitant]
  30. ZOCOR [Concomitant]
  31. MONOPRIL [Concomitant]
  32. ACCUPRIL [Concomitant]
  33. CLONIDINE [Concomitant]
  34. CARTIA XT [Concomitant]
  35. PLAVIX [Concomitant]
  36. SODIUM BICARBONATE [Concomitant]
  37. NEPHROCAPS [Concomitant]
  38. CLARITIN [Concomitant]
  39. FLORINEF [Concomitant]
  40. OXYCODONE HCL AND ACETAMINOPHEN [Concomitant]
  41. PROMETHAZINE [Concomitant]
  42. LEVAQUIN [Concomitant]
  43. VANCOCIN HYDROCHLORIDE [Concomitant]
  44. LYRICA [Concomitant]
  45. INSULIN [Concomitant]
  46. CATAPRES [Concomitant]
  47. NULYTELY [Concomitant]
  48. NEURONTIN [Concomitant]
  49. PROAMATINE [Concomitant]
  50. EYE DROPS [Concomitant]
  51. GLUCAGON [Concomitant]
  52. MAGNESIUM OXIDE [Concomitant]
  53. ASPIRIN [Concomitant]
  54. OXYCODONE HCL [Concomitant]
  55. COGENTIN [Concomitant]
  56. METOCLOPRAMIDE [Suspect]
     Indication: IMPAIRED GASTRIC EMPTYING
     Dosage: 10 MG, QID, PO
     Route: 048
     Dates: start: 20000420, end: 20101108
  57. NORVASC [Concomitant]
  58. POTASSIUM PHOSPHATES [Concomitant]
  59. MYCOPHENOLATE MOFETIL (CELLCEPT) [Concomitant]
  60. ARMODAFINIL [Concomitant]
  61. LORAZEPAM [Concomitant]
  62. CEPHALEXIN [Concomitant]
  63. RIFADIN [Concomitant]
  64. PROCHLORPERAZINE [Concomitant]
  65. SYNTHROID [Concomitant]
  66. LIPITOR [Concomitant]
  67. GENGRAF [Concomitant]
  68. METHADONE HCL [Concomitant]
  69. DONNATOL [Concomitant]
  70. PROCRIT [Concomitant]
  71. DOCUSATE [Concomitant]
  72. DEPAKOTE [Concomitant]
  73. PRILOSEC [Concomitant]
  74. DILTIAZEM HCL [Concomitant]
  75. BENZTROPINE MESYLATE [Concomitant]
  76. ZYPREXA [Concomitant]

REACTIONS (31)
  - UPPER RESPIRATORY TRACT INFECTION [None]
  - OSTEOPOROSIS [None]
  - DIABETES MELLITUS [None]
  - PAIN IN EXTREMITY [None]
  - ATROPHY [None]
  - PERIPHERAL SENSORY NEUROPATHY [None]
  - EXTRAPYRAMIDAL DISORDER [None]
  - TREMOR [None]
  - PERONEAL NERVE PALSY [None]
  - CONFUSIONAL STATE [None]
  - AREFLEXIA [None]
  - ASTHENIA [None]
  - PROTRUSION TONGUE [None]
  - RADICULOPATHY [None]
  - THERMAL BURN [None]
  - HYPOAESTHESIA [None]
  - BALANCE DISORDER [None]
  - EMOTIONAL DISORDER [None]
  - BACK PAIN [None]
  - GAIT DISTURBANCE [None]
  - DYSKINESIA [None]
  - PARKINSON'S DISEASE [None]
  - ECONOMIC PROBLEM [None]
  - DYSARTHRIA [None]
  - DIZZINESS [None]
  - MUSCLE ATROPHY [None]
  - TARDIVE DYSKINESIA [None]
  - DIABETIC NEUROPATHY [None]
  - TRANSIENT ISCHAEMIC ATTACK [None]
  - INJURY [None]
  - ARTHRALGIA [None]
